FAERS Safety Report 8213960-8 (Version None)
Quarter: 2012Q1

REPORT INFORMATION
  Report Type: 
  Country: None (occurrence: None)
  Receive Date: 20120316
  Receipt Date: 20120312
  Transmission Date: 20120608
  Serious: No
  Sender: FDA-Public Use
  Company Number: US-PFIZER INC-2012065141

PATIENT
  Sex: Male
  Weight: 111 kg

DRUGS (3)
  1. LYRICA [Suspect]
     Indication: NERVE INJURY
     Dosage: 300 MG, 2X/DAY
  2. NORCO [Concomitant]
     Indication: PAIN
     Dosage: 10/325 MG, 3X/DAY
  3. MS CONTIN [Concomitant]
     Indication: PAIN
     Dosage: 30 MG, 2X/DAY

REACTIONS (5)
  - MALAISE [None]
  - BLISTER [None]
  - VOMITING [None]
  - WITHDRAWAL SYNDROME [None]
  - DIARRHOEA [None]
